FAERS Safety Report 11044865 (Version 1)
Quarter: 2015Q2

REPORT INFORMATION
  Report Type: Spontaneous
  Country: JP (occurrence: JP)
  Receive Date: 20150417
  Receipt Date: 20150417
  Transmission Date: 20150821
  Serious: Yes (Death, Hospitalization)
  Sender: FDA-Public Use
  Company Number: PHHY2015JP040116

PATIENT
  Sex: Male

DRUGS (1)
  1. HEPARIN [Suspect]
     Active Substance: HEPARIN SODIUM
     Indication: THROMBOSIS
     Dosage: 10000 U, UNK
     Route: 065

REACTIONS (3)
  - Haemorrhage [Fatal]
  - Haemoptysis [Fatal]
  - Thrombotic stroke [Fatal]
